FAERS Safety Report 13513532 (Version 1)
Quarter: 2017Q2

REPORT INFORMATION
  Report Type: Spontaneous
  Country: RO (occurrence: RO)
  Receive Date: 20170504
  Receipt Date: 20170504
  Transmission Date: 20170830
  Serious: Yes (Hospitalization, Other)
  Sender: FDA-Public Use
  Company Number: RO-ROCHE-1930377

PATIENT
  Sex: Male

DRUGS (3)
  1. RIVOTRIL [Suspect]
     Active Substance: CLONAZEPAM
     Indication: EPILEPSY
     Route: 065
  2. DEPAKENE [Concomitant]
     Active Substance: VALPROIC ACID
  3. XANAX [Concomitant]
     Active Substance: ALPRAZOLAM

REACTIONS (2)
  - Jaundice cholestatic [Recovered/Resolved]
  - Gallbladder disorder [Recovered/Resolved]
